FAERS Safety Report 5005879-0 (Version None)
Quarter: 2006Q2

REPORT INFORMATION
  Report Type: 
  Country: None (occurrence: None)
  Receive Date: 20060515
  Receipt Date: 20060313
  Transmission Date: 20061013
  Serious: No
  Sender: FDA-Public Use
  Company Number: 34574

PATIENT
  Age: 70 Year
  Sex: Male
  Weight: 92.9874 kg

DRUGS (3)
  1. TRIMETHOPRIM SULFATE/POLYMYXIN B SULFATE SOLUTION [Suspect]
     Indication: EYE IRRITATION
     Dates: start: 20051227, end: 20060102
  2. GLIPIZIDE [Concomitant]
  3. METFORMIN [Concomitant]

REACTIONS (2)
  - EYE IRRITATION [None]
  - VISUAL DISTURBANCE [None]
